FAERS Safety Report 7546991-1 (Version None)
Quarter: 2011Q2

REPORT INFORMATION
  Report Type: 
  Country: None (occurrence: None)
  Receive Date: 20110614
  Receipt Date: 20110607
  Transmission Date: 20111010
  Serious: Yes (Other)
  Sender: FDA-Public Use
  Company Number: PHHY2011GB49125

PATIENT
  Age: 10 Year
  Sex: Female
  Weight: 28.4 kg

DRUGS (1)
  1. CLONIDINE [Suspect]
     Indication: TIC
     Dosage: 50 UG, BID
     Route: 048
     Dates: start: 20100101

REACTIONS (1)
  - ANAL DILATATION [None]
